FAERS Safety Report 11092815 (Version 1)
Quarter: 2015Q2

REPORT INFORMATION
  Report Type: Spontaneous
  Country: US (occurrence: US)
  Receive Date: 20150506
  Receipt Date: 20150506
  Transmission Date: 20150821
  Serious: Yes (Other)
  Sender: FDA-Public Use
  Company Number: US-JNJFOC-20150502741

PATIENT
  Age: 82 Year

DRUGS (1)
  1. IMBRUVICA [Suspect]
     Active Substance: IBRUTINIB
     Indication: CHRONIC LYMPHOCYTIC LEUKAEMIA
     Dosage: START PERIOD 39 DAYS, LAST PERIOD 12 DAYS
     Route: 048
     Dates: start: 20140408, end: 20140505

REACTIONS (1)
  - Anal ulcer [Unknown]

NARRATIVE: CASE EVENT DATE: 20140516
